FAERS Safety Report 23992258 (Version 3)
Quarter: 2024Q4

REPORT INFORMATION
  Report Type: Report from Study
  Country: BR (occurrence: BR)
  Receive Date: 20240620
  Receipt Date: 20241001
  Transmission Date: 20250114
  Serious: Yes (Other)
  Sender: JOHNSON AND JOHNSON
  Company Number: BR-JNJFOC-20240639600

PATIENT
  Age: 56 Year
  Sex: Female
  Weight: 36 kg

DRUGS (3)
  1. INFLIXIMAB [Suspect]
     Active Substance: INFLIXIMAB
     Indication: Crohn^s disease
     Route: 041
     Dates: start: 2019
  2. INFLIXIMAB [Suspect]
     Active Substance: INFLIXIMAB
     Dosage: PENULTIMATE INFUSION
     Route: 041
     Dates: start: 202312
  3. INFLIXIMAB [Suspect]
     Active Substance: INFLIXIMAB
     Indication: Crohn^s disease
     Route: 041

REACTIONS (6)
  - Intestinal resection [Unknown]
  - Crohn^s disease [Not Recovered/Not Resolved]
  - Gait inability [Unknown]
  - Adverse drug reaction [Unknown]
  - Drug hypersensitivity [Unknown]
  - Drug ineffective [Unknown]

NARRATIVE: CASE EVENT DATE: 20190101
